FAERS Safety Report 20070142 (Version 2)
Quarter: 2021Q4

REPORT INFORMATION
  Report Type: Spontaneous
  Country: CN (occurrence: CN)
  Receive Date: 20211115
  Receipt Date: 20211130
  Transmission Date: 20220303
  Serious: Yes (Death, Hospitalization, Other)
  Sender: FDA-Public Use
  Company Number: CN-BoehringerIngelheim-2021-BI-138244

PATIENT
  Age: 77 Year
  Sex: Female

DRUGS (1)
  1. GILOTRIF [Suspect]
     Active Substance: AFATINIB
     Indication: Lung adenocarcinoma
     Route: 048
     Dates: start: 20211110

REACTIONS (3)
  - Cerebral haemorrhage [Fatal]
  - Dyspnoea [Unknown]
  - Coma [Unknown]

NARRATIVE: CASE EVENT DATE: 20211101
